FAERS Safety Report 4987397-9 (Version None)
Quarter: 2006Q2

REPORT INFORMATION
  Report Type: 
  Country: None (occurrence: None)
  Receive Date: 20060501
  Receipt Date: 20051005
  Transmission Date: 20061013
  Serious: Yes (Hospitalization, Disabling)
  Sender: FDA-Public Use
  Company Number: PR-MERCK-0510USA05405

PATIENT
  Age: 56 Year
  Sex: Male
  Weight: 82 kg

DRUGS (9)
  1. VIOXX [Suspect]
     Indication: OSTEOARTHRITIS
     Route: 048
     Dates: start: 20020301, end: 20040901
  2. VIOXX [Suspect]
     Indication: ANTIINFLAMMATORY THERAPY
     Route: 048
     Dates: start: 20020301, end: 20040901
  3. CELEBREX [Concomitant]
     Route: 065
     Dates: start: 20030101, end: 20040101
  4. BEXTRA [Concomitant]
     Route: 065
     Dates: start: 20040101
  5. RANITIDINE [Concomitant]
     Indication: ULCER
     Route: 065
     Dates: start: 20030220, end: 20031016
  6. VALTREX [Concomitant]
     Indication: HERPES VIRUS INFECTION
     Route: 065
     Dates: start: 20021216, end: 20040101
  7. PAXIL [Concomitant]
     Indication: DEPRESSION
     Route: 065
     Dates: start: 20021122, end: 20030128
  8. AMARYL [Concomitant]
     Indication: DIABETES MELLITUS
     Route: 065
     Dates: start: 20021216, end: 20050101
  9. AMBIEN [Concomitant]
     Indication: SLEEP DISORDER
     Route: 065
     Dates: start: 20021220, end: 20030702

REACTIONS (15)
  - ACUTE CORONARY SYNDROME [None]
  - ANGINA UNSTABLE [None]
  - APHASIA [None]
  - CARDIOVASCULAR DISORDER [None]
  - CHEST PAIN [None]
  - CORONARY ARTERY DISEASE [None]
  - CORONARY ARTERY STENOSIS [None]
  - DEPRESSION [None]
  - EMOTIONAL DISTRESS [None]
  - HYPERTENSION [None]
  - INJURY [None]
  - MYOCARDIAL INFARCTION [None]
  - PAIN [None]
  - SPINAL CORD DISORDER [None]
  - ULCER [None]
